FAERS Safety Report 5026756-5 (Version None)
Quarter: 2006Q2

REPORT INFORMATION
  Report Type: 
  Country: None (occurrence: None)
  Receive Date: 20060615
  Receipt Date: 20060607
  Transmission Date: 20061013
  Serious: Yes (Death, Other)
  Sender: FDA-Public Use
  Company Number: NL-JNJFOC-20050402105

PATIENT
  Age: 82 Year
  Sex: Female
  Weight: 60 kg

DRUGS (9)
  1. REMICADE [Suspect]
     Route: 042
  2. REMICADE [Suspect]
     Indication: RHEUMATOID ARTHRITIS
     Dosage: 34 MONTHS OF TREATMENT
     Route: 042
  3. PREDNISONE [Concomitant]
  4. AZATHIOPRINE [Concomitant]
  5. DICLOFENAC POTASSIUM [Concomitant]
  6. OMEPRAZOL [Concomitant]
  7. FUROSEMIDE [Concomitant]
  8. CALCIUM GLUCONATE [Concomitant]
  9. DEVARONE [Concomitant]

REACTIONS (4)
  - DISSEMINATED TUBERCULOSIS [None]
  - INFECTION [None]
  - MULTI-ORGAN FAILURE [None]
  - SEPSIS [None]
